FAERS Safety Report 6375874-8 (Version None)
Quarter: 2009Q3

REPORT INFORMATION
  Report Type: 
  Country: None (occurrence: None)
  Receive Date: 20090924
  Receipt Date: 20090914
  Transmission Date: 20100115
  Serious: Yes (Other)
  Sender: FDA-Public Use
  Company Number: US-WYE-H10964209

PATIENT
  Age: 65 Year
  Sex: Female
  Weight: 79.45 kg

DRUGS (6)
  1. PRISTIQ [Suspect]
     Indication: ANGER
     Route: 048
     Dates: start: 20090803
  2. PRISTIQ [Suspect]
     Indication: DEPRESSION
  3. JANUVIA [Concomitant]
     Indication: DIABETES MELLITUS
     Dosage: UNKNOWN
     Dates: end: 20090901
  4. SPIRONOLACTONE [Concomitant]
     Indication: HYPERTENSION
     Dosage: UNKNOWN
  5. OXYCODONE HCL [Concomitant]
     Indication: PAIN
     Dosage: UNKNOWN
  6. XANAX [Concomitant]
     Indication: TREMOR
     Dosage: UNKNOWN DOSE, AS NEEDED

REACTIONS (8)
  - ANGER [None]
  - BLOOD GLUCOSE DECREASED [None]
  - CONDITION AGGRAVATED [None]
  - DRUG EFFECT DECREASED [None]
  - DYSPHEMIA [None]
  - HYPERHIDROSIS [None]
  - SUICIDAL IDEATION [None]
  - THERAPEUTIC RESPONSE UNEXPECTED [None]
